FAERS Safety Report 4264227-4 (Version None)
Quarter: 2004Q1

REPORT INFORMATION
  Report Type: 
  Country: None (occurrence: None)
  Receive Date: 20040102
  Receipt Date: 20031223
  Transmission Date: 20041129
  Serious: Yes (Other)
  Sender: FDA-Public Use
  Company Number: NSADSS2003022438

PATIENT
  Age: 11 Year
  Sex: Female
  Weight: 42.1845 kg

DRUGS (4)
  1. REMICADE [Suspect]
     Indication: BEHCET'S SYNDROME
     Dosage: SEE IMAGE
     Route: 041
     Dates: start: 20020401, end: 20020401
  2. REMICADE [Suspect]
     Indication: BEHCET'S SYNDROME
     Dosage: SEE IMAGE
     Route: 041
     Dates: start: 20030403, end: 20030403
  3. REMICADE [Suspect]
     Indication: BEHCET'S SYNDROME
     Dosage: SEE IMAGE
     Route: 041
     Dates: start: 20030430, end: 20030430
  4. COLCHICINE (COLCHICINE) [Concomitant]

REACTIONS (3)
  - BEHCET'S SYNDROME [None]
  - CONDITION AGGRAVATED [None]
  - PERICARDIAL EFFUSION [None]
